FAERS Safety Report 7246888-0 (Version None)
Quarter: 2011Q1

REPORT INFORMATION
  Report Type: 
  Country: None (occurrence: None)
  Receive Date: 20110127
  Receipt Date: 20110124
  Transmission Date: 20110831
  Serious: Yes (Life-Threatening, Other)
  Sender: FDA-Public Use
  Company Number: PHFR2010GB04345

PATIENT
  Sex: Female

DRUGS (3)
  1. CLOZARIL [Suspect]
     Indication: SCHIZOPHRENIA
     Dosage: UNK MG, UNK
     Route: 048
     Dates: start: 20100823
  2. DEPAKOTE [Concomitant]
     Indication: SCHIZOAFFECTIVE DISORDER
     Dosage: 1000 MG, UNK
     Route: 048
  3. CLOZARIL [Suspect]
     Dosage: 225 MG, UNK
     Route: 048
     Dates: start: 20100825, end: 20101101

REACTIONS (8)
  - GLOMERULAR FILTRATION RATE DECREASED [None]
  - SEDATION [None]
  - C-REACTIVE PROTEIN INCREASED [None]
  - TUBULOINTERSTITIAL NEPHRITIS [None]
  - BLOOD CREATININE INCREASED [None]
  - SOMNOLENCE [None]
  - DISORIENTATION [None]
  - EOSINOPHIL COUNT INCREASED [None]
